FAERS Safety Report 9531250 (Version 1)
Quarter: 2013Q3

REPORT INFORMATION
  Report Type: Spontaneous
  Country: US (occurrence: US)
  Receive Date: 20130918
  Receipt Date: 20130918
  Transmission Date: 20140515
  Serious: Yes (Other)
  Sender: FDA-Public Use
  Company Number: US-VERTEX PHARMACEUTICALS INC-2013-009591

PATIENT
  Age: 58 Year
  Sex: Male

DRUGS (9)
  1. INCIVEK [Suspect]
     Indication: HEPATITIS C
     Dosage: 750 MG, TID
     Route: 048
     Dates: start: 20130730, end: 20130910
  2. RIBAVIRIN [Suspect]
     Indication: HEPATITIS C
     Dosage: 200 MG, BID
     Route: 048
     Dates: start: 20130730, end: 20130820
  3. PEGASYS [Suspect]
     Indication: HEPATITIS C
     Dosage: 180 ?G, QW
     Route: 058
     Dates: start: 20130730
  4. PEGASYS [Suspect]
     Dosage: 135 ?G, UNK
     Route: 058
     Dates: start: 20130827, end: 20130910
  5. SYMBICORT [Concomitant]
     Route: 055
  6. ALPRAZOLAM [Concomitant]
     Dosage: 5 MG, TID
     Route: 048
  7. PROMACTA [Concomitant]
     Indication: CRYOGLOBULINAEMIA
  8. LASIX [Concomitant]
  9. ALDACTONE [Concomitant]

REACTIONS (6)
  - Pancytopenia [Not Recovered/Not Resolved]
  - Ascites [Not Recovered/Not Resolved]
  - Abdominal distension [Not Recovered/Not Resolved]
  - Scrotal swelling [Not Recovered/Not Resolved]
  - Generalised oedema [Not Recovered/Not Resolved]
  - Local swelling [Not Recovered/Not Resolved]
